FAERS Safety Report 17733735 (Version 2)
Quarter: 2021Q2

REPORT INFORMATION
  Report Type: Spontaneous
  Country: US (occurrence: US)
  Receive Date: 20200501
  Receipt Date: 20210604
  Transmission Date: 20210716
  Serious: Yes (Other)
  Sender: FDA-Public Use
  Company Number: US-ASTRAZENECA-2020SE56744

PATIENT
  Age: 46 Year
  Sex: Female
  Weight: 78.5 kg

DRUGS (38)
  1. NEXIUM 24HR [Suspect]
     Active Substance: ESOMEPRAZOLE MAGNESIUM
     Indication: GASTROOESOPHAGEAL REFLUX DISEASE
     Route: 048
     Dates: start: 200003, end: 200312
  2. NEXIUM 24HR [Suspect]
     Active Substance: ESOMEPRAZOLE MAGNESIUM
     Indication: GASTROOESOPHAGEAL REFLUX DISEASE
     Route: 048
     Dates: start: 2014
  3. NEXIUM [Suspect]
     Active Substance: ESOMEPRAZOLE MAGNESIUM
     Indication: GASTROOESOPHAGEAL REFLUX DISEASE
     Route: 048
     Dates: start: 2000, end: 2014
  4. TYLENOL [Concomitant]
     Active Substance: ACETAMINOPHEN
     Indication: INFLUENZA
     Route: 065
  5. FLUCONAZOLE. [Concomitant]
     Active Substance: FLUCONAZOLE
  6. CITALOPRAM [Concomitant]
     Active Substance: CITALOPRAM HYDROBROMIDE
  7. NORCURON [Concomitant]
     Active Substance: VECURONIUM BROMIDE
  8. CYANOCOBALAMINE [Concomitant]
     Active Substance: CYANOCOBALAMIN
  9. ASPIRIN. [Concomitant]
     Active Substance: ASPIRIN
  10. AZITHROMYCIN ANHYDROUS. [Concomitant]
     Active Substance: AZITHROMYCIN ANHYDROUS
  11. METRONIDAZOLE. [Concomitant]
     Active Substance: METRONIDAZOLE
  12. PROTONIX [Suspect]
     Active Substance: PANTOPRAZOLE SODIUM
     Indication: GASTROOESOPHAGEAL REFLUX DISEASE
     Route: 065
     Dates: start: 2000, end: 2013
  13. MAGNESIUM [Concomitant]
     Active Substance: MAGNESIUM
     Indication: BLOOD PRESSURE ABNORMAL
     Route: 065
     Dates: start: 2016
  14. FLUTICASONE. [Concomitant]
     Active Substance: FLUTICASONE
  15. CETRIZINE [Concomitant]
     Active Substance: CETIRIZINE HYDROCHLORIDE
  16. GLIPIZIDE. [Concomitant]
     Active Substance: GLIPIZIDE
  17. TACROLIMUS. [Concomitant]
     Active Substance: TACROLIMUS
     Indication: KIDNEY TRANSPLANT REJECTION
     Route: 065
     Dates: start: 2016
  18. ALLOPURINOL. [Concomitant]
     Active Substance: ALLOPURINOL
  19. KETAMINE [Concomitant]
     Active Substance: KETAMINE
  20. FLUOXETINE [Concomitant]
     Active Substance: FLUOXETINE HYDROCHLORIDE
     Indication: DEPRESSION
     Route: 065
     Dates: start: 2016
  21. SIMVASTATIN. [Concomitant]
     Active Substance: SIMVASTATIN
     Indication: CEREBRAL DISORDER
     Route: 065
     Dates: start: 2016
  22. TYLENOL [Concomitant]
     Active Substance: ACETAMINOPHEN
     Indication: PAIN
     Route: 065
  23. TYLENOL [Concomitant]
     Active Substance: ACETAMINOPHEN
     Indication: PYREXIA
     Route: 065
  24. IBUPROFEN. [Concomitant]
     Active Substance: IBUPROFEN
  25. NEURONTIN [Concomitant]
     Active Substance: GABAPENTIN
  26. MARCAINE [Concomitant]
     Active Substance: BUPIVACAINE HYDROCHLORIDE
  27. HEPARIN [Concomitant]
     Active Substance: HEPARIN SODIUM
  28. ZEMURON [Concomitant]
     Active Substance: ROCURONIUM BROMIDE
  29. NEXIUM [Suspect]
     Active Substance: ESOMEPRAZOLE MAGNESIUM
     Indication: GASTROOESOPHAGEAL REFLUX DISEASE
     Route: 048
     Dates: start: 2000, end: 2014
  30. NEXIUM [Suspect]
     Active Substance: ESOMEPRAZOLE MAGNESIUM
     Indication: GASTROOESOPHAGEAL REFLUX DISEASE
     Dosage: GENERIC
     Route: 065
     Dates: start: 2013
  31. PROTONIX [Suspect]
     Active Substance: PANTOPRAZOLE SODIUM
     Indication: GASTROOESOPHAGEAL REFLUX DISEASE
     Route: 065
     Dates: start: 200003, end: 200312
  32. ABILIFY [Concomitant]
     Active Substance: ARIPIPRAZOLE
  33. DEXAMETHASONE. [Concomitant]
     Active Substance: DEXAMETHASONE
  34. OMEPRAZOLE. [Suspect]
     Active Substance: OMEPRAZOLE
     Indication: GASTROOESOPHAGEAL REFLUX DISEASE
     Dosage: GENERIC
     Route: 065
  35. FUROSEMIDE. [Concomitant]
     Active Substance: FUROSEMIDE
     Indication: RENAL DISORDER
     Route: 065
     Dates: start: 2019
  36. BENADRYL [Concomitant]
     Active Substance: DIPHENHYDRAMINE HYDROCHLORIDE
     Indication: HYPERSENSITIVITY
     Route: 065
  37. PROCAINE [Concomitant]
     Active Substance: PROCAINE
  38. SUBLIMAZE [Concomitant]
     Active Substance: FENTANYL CITRATE

REACTIONS (5)
  - Renal failure [Not Recovered/Not Resolved]
  - Gastrooesophageal reflux disease [Not Recovered/Not Resolved]
  - Chronic kidney disease [Not Recovered/Not Resolved]
  - End stage renal disease [Not Recovered/Not Resolved]
  - Renal tubular necrosis [Unknown]

NARRATIVE: CASE EVENT DATE: 2004
